FAERS Safety Report 23851525 (Version 1)
Quarter: 2024Q2

REPORT INFORMATION
  Report Type: Spontaneous
  Country: EG (occurrence: EG)
  Receive Date: 20240514
  Receipt Date: 20240514
  Transmission Date: 20240715
  Serious: Yes (Hospitalization)
  Sender: FDA-Public Use
  Company Number: EG-Merck Healthcare KGaA-2024024947

PATIENT
  Age: 57 Year
  Sex: Male

DRUGS (2)
  1. GLUCOVANCE [Suspect]
     Active Substance: GLYBURIDE\METFORMIN HYDROCHLORIDE
     Indication: Diabetes mellitus
     Dosage: GLUCOVANCE (GLIBENCLAMIDE/ METFORMIN 500 MG) TABLET ONCE DAILY AT EVENING
     Route: 048
  2. METFORMIN HYDROCHLORIDE\VILDAGLIPTIN [Suspect]
     Active Substance: METFORMIN HYDROCHLORIDE\VILDAGLIPTIN
     Indication: Diabetes mellitus
     Dosage: METFORMIN HYDROCHLORIDE/ VILDAGLIPTIN 1000 MG ONCE DAILY AT MORNING MANUFACTURED BY EVAPHARM
     Route: 048

REACTIONS (4)
  - Varices oesophageal [Recovered/Resolved]
  - Hepatic cirrhosis [Recovered/Resolved]
  - Haematemesis [Recovered/Resolved]
  - Haemoglobin decreased [Recovered/Resolved]

NARRATIVE: CASE EVENT DATE: 20240111
